FAERS Safety Report 9783301 (Version 2)
Quarter: 2014Q1

REPORT INFORMATION
  Report Type: Spontaneous
  Country: None (occurrence: None)
  Receive Date: 20131223
  Receipt Date: 20140218
  Transmission Date: 20141002
  Serious: Yes (Other)
  Sender: FDA-Public Use
  Company Number: 2013NL0518

PATIENT
  Age: 3 Year
  Sex: Female

DRUGS (1)
  1. ANAKINRA [Suspect]
     Indication: MUCKLE-WELLS SYNDROME
     Dosage: 1 IN 2 D

REACTIONS (2)
  - Histiocytosis haematophagic [None]
  - Underdose [None]
